FAERS Safety Report 20426044 (Version 1)
Quarter: 2022Q1

REPORT INFORMATION
  Report Type: Report from Study
  Country: US (occurrence: US)
  Receive Date: 20220204
  Receipt Date: 20220204
  Transmission Date: 20220423
  Serious: No
  Sender: FDA-Public Use
  Company Number: US-EXELIXIS-CABO-21041219

PATIENT
  Sex: Male

DRUGS (10)
  1. CABOMETYX [Suspect]
     Active Substance: CABOZANTINIB S-MALATE
     Indication: Renal cancer
     Dosage: 60 MG, QD
     Route: 048
     Dates: start: 20200411
  2. CABOMETYX [Suspect]
     Active Substance: CABOZANTINIB S-MALATE
     Dosage: 40 MG, QD
     Route: 048
     Dates: start: 20200415
  3. CABOMETYX [Suspect]
     Active Substance: CABOZANTINIB S-MALATE
     Dosage: 40 MG, QD
     Route: 048
  4. AZELASTINE [Concomitant]
     Active Substance: AZELASTINE
  5. FLUTICASONE [Concomitant]
     Active Substance: FLUTICASONE
  6. MUPIROCIN [Concomitant]
     Active Substance: MUPIROCIN
  7. LEVOTHYROXINE SODIUM [Concomitant]
     Active Substance: LEVOTHYROXINE SODIUM
  8. METHYLPREDNISOLONE [Concomitant]
     Active Substance: METHYLPREDNISOLONE
  9. ONDANSETRON [Concomitant]
     Active Substance: ONDANSETRON
  10. VALACYCLOVIR [Concomitant]
     Active Substance: VALACYCLOVIR HYDROCHLORIDE

REACTIONS (5)
  - Fatigue [Unknown]
  - Diarrhoea [Unknown]
  - Gingival bleeding [Unknown]
  - Palmar-plantar erythrodysaesthesia syndrome [Unknown]
  - Product dose omission issue [Unknown]
